FAERS Safety Report 6022280-1 (Version None)
Quarter: 2008Q4

REPORT INFORMATION
  Report Type: 
  Country: None (occurrence: None)
  Receive Date: 20081230
  Receipt Date: 20081226
  Transmission Date: 20090506
  Serious: Yes (Death)
  Sender: FDA-Public Use
  Company Number: JP-JNJFOC-20081203959

PATIENT
  Age: 67 Year
  Sex: Male

DRUGS (11)
  1. FENTANYL CITRATE [Suspect]
     Route: 062
  2. FENTANYL CITRATE [Suspect]
     Route: 062
  3. FENTANYL CITRATE [Suspect]
     Indication: DRUG USE FOR UNKNOWN INDICATION
     Route: 062
  4. FENTANYL CITRATE [Suspect]
     Indication: CANCER PAIN
     Route: 062
  5. NOVAMIN [Suspect]
     Indication: VOMITING
     Route: 048
  6. NOVAMIN [Suspect]
     Indication: NAUSEA
     Route: 048
  7. ITRIZOLE [Concomitant]
     Route: 048
  8. ITRIZOLE ORAL SOLUTION [Concomitant]
     Indication: ORAL CANDIDIASIS
     Route: 048
  9. GASTER [Concomitant]
     Indication: ABDOMINAL DISCOMFORT
     Route: 048
  10. DECADRON [Concomitant]
     Indication: ANALGESIA
     Route: 048
  11. MAGMITT [Concomitant]
     Indication: CONSTIPATION
     Route: 048

REACTIONS (2)
  - DISEASE PROGRESSION [None]
  - SOMNOLENCE [None]
